FAERS Safety Report 5923741-3 (Version None)
Quarter: 2008Q3

REPORT INFORMATION
  Report Type: 
  Country: None (occurrence: None)
  Receive Date: 20080909
  Receipt Date: 20071226
  Transmission Date: 20090109
  Serious: Yes (Death)
  Sender: FDA-Public Use
  Company Number: 163-20785-07111476

PATIENT
  Age: 87 Year
  Sex: Male

DRUGS (2)
  1. THALOMID (THALIDOMIDE) (50 MILLIGRAM CAPSULES) [Suspect]
     Indication: MULTIPLE MYELOMA
     Dosage: 50 MG, 1 IN 1 D, ORAL : AT HS, 1 IN 1 D, ORAL
     Route: 048
     Dates: start: 20070710, end: 20070901
  2. THALOMID (THALIDOMIDE) (50 MILLIGRAM CAPSULES) [Suspect]
     Indication: MULTIPLE MYELOMA
     Dosage: 50 MG, 1 IN 1 D, ORAL : AT HS, 1 IN 1 D, ORAL
     Route: 048
     Dates: start: 20071011, end: 20071001

REACTIONS (2)
  - DISEASE PROGRESSION [None]
  - MULTIPLE MYELOMA [None]
